FAERS Safety Report 21944334 (Version 1)
Quarter: 2023Q1

REPORT INFORMATION
  Report Type: Spontaneous
  Country: BR (occurrence: BR)
  Receive Date: 20230202
  Receipt Date: 20230202
  Transmission Date: 20230418
  Serious: Yes (Hospitalization, Other)
  Sender: FDA-Public Use
  Company Number: BR-CHEPLA-2023001363

PATIENT
  Sex: Male
  Weight: 90 kg

DRUGS (8)
  1. CLONAZEPAM [Suspect]
     Active Substance: CLONAZEPAM
     Indication: Depression
     Dosage: AT NIGHT, STRENGTH: 2 MG?DAILY DOSE: 1 DOSAGE FORM
     Route: 048
     Dates: start: 1993
  2. CLONAZEPAM [Suspect]
     Active Substance: CLONAZEPAM
     Indication: Insomnia
     Dosage: AT NIGHT, STRENGTH: 2 MG?DAILY DOSE: 1 DOSAGE FORM
     Route: 048
     Dates: start: 1993
  3. CLONAZEPAM [Suspect]
     Active Substance: CLONAZEPAM
     Indication: Depression
     Dosage: AT NIGHT. STRENGTH: 2.5 MG/ML?DAILY DOSE: 20 DROP
     Route: 048
     Dates: start: 202301
  4. CLONAZEPAM [Suspect]
     Active Substance: CLONAZEPAM
     Indication: Insomnia
     Dosage: AT NIGHT. STRENGTH: 2.5 MG/ML?DAILY DOSE: 20 DROP
     Route: 048
     Dates: start: 202301
  5. CLONAZEPAM [Suspect]
     Active Substance: CLONAZEPAM
     Indication: Depression
     Dosage: AT NIGHT, STRENGTH: 2 MG?DAILY DOSE: 2 DOSAGE FORM
     Route: 048
     Dates: end: 202212
  6. CLONAZEPAM [Suspect]
     Active Substance: CLONAZEPAM
     Indication: Insomnia
     Dosage: AT NIGHT, STRENGTH: 2 MG?DAILY DOSE: 2 DOSAGE FORM
     Route: 048
     Dates: end: 202212
  7. PHENYTOIN [Concomitant]
     Active Substance: PHENYTOIN
     Indication: Cerebrovascular disorder
     Dosage: ONGOING?DAILY DOSE: 1 DOSAGE FORM
     Route: 048
     Dates: start: 2022
  8. AMLODIPINE [Concomitant]
     Active Substance: AMLODIPINE BESYLATE
     Indication: Hypertension
     Dosage: AT LUNCH TIME, ONGOING?DAILY DOSE: 2 DOSAGE FORM
     Route: 048
     Dates: start: 2022

REACTIONS (9)
  - Pituitary tumour [Recovered/Resolved]
  - Blindness [Recovered/Resolved]
  - Thyroid hormones decreased [Not Recovered/Not Resolved]
  - Agitation [Not Recovered/Not Resolved]
  - Abnormal dreams [Not Recovered/Not Resolved]
  - Sluggishness [Recovered/Resolved]
  - Depressed mood [Not Recovered/Not Resolved]
  - Incorrect dose administered [Not Recovered/Not Resolved]
  - Product use in unapproved indication [Not Recovered/Not Resolved]

NARRATIVE: CASE EVENT DATE: 19930101
